FAERS Safety Report 13835434 (Version 2)
Quarter: 2017Q3

REPORT INFORMATION
  Report Type: Spontaneous
  Country: IT (occurrence: IT)
  Receive Date: 20170804
  Receipt Date: 20170919
  Transmission Date: 20171127
  Serious: Yes (Other)
  Sender: FDA-Public Use
  Company Number: IT-TEVA-791944ACC

PATIENT
  Age: 56 Year
  Sex: Male

DRUGS (5)
  1. COTAREG [Concomitant]
     Active Substance: HYDROCHLOROTHIAZIDE\VALSARTAN
     Indication: PRODUCT USED FOR UNKNOWN INDICATION
  2. FOLINA [Concomitant]
     Active Substance: FOLIC ACID
     Indication: PRODUCT USED FOR UNKNOWN INDICATION
  3. PANTORC [Concomitant]
     Active Substance: PANTOPRAZOLE SODIUM
     Indication: PRODUCT USED FOR UNKNOWN INDICATION
  4. SIMVASTATIN. [Concomitant]
     Active Substance: SIMVASTATIN
     Indication: PRODUCT USED FOR UNKNOWN INDICATION
  5. METHOTREXATE. [Suspect]
     Active Substance: METHOTREXATE
     Indication: RHEUMATOID ARTHRITIS
     Dosage: 10 MG WEEKLY?
     Route: 030
     Dates: start: 20150109

REACTIONS (2)
  - Cholecystitis acute [Recovered/Resolved]
  - Mucosal necrosis [Recovered/Resolved]

NARRATIVE: CASE EVENT DATE: 20170103
